FAERS Safety Report 18034211 (Version 2)
Quarter: 2020Q3

REPORT INFORMATION
  Report Type: Report from Study
  Country: US (occurrence: US)
  Receive Date: 20200716
  Receipt Date: 20200825
  Transmission Date: 20201103
  Serious: Yes (Hospitalization)
  Sender: FDA-Public Use
  Company Number: US-ACTELION-A-US2020-200806

PATIENT
  Age: 2 Year
  Sex: Male

DRUGS (6)
  1. TRACLEER [Suspect]
     Active Substance: BOSENTAN
     Indication: VENTRICULAR SEPTAL DEFECT
     Dosage: 32 MG, QD
     Route: 048
     Dates: start: 20190921
  2. ENALAPRIL [Concomitant]
     Active Substance: ENALAPRIL
  3. TRACLEER [Suspect]
     Active Substance: BOSENTAN
     Indication: ESSENTIAL HYPERTENSION
     Dosage: 16 MG, BID
     Route: 048
     Dates: start: 20190921
  4. ASPIRIN. [Concomitant]
     Active Substance: ASPIRIN
  5. OMEPRAZOLE. [Concomitant]
     Active Substance: OMEPRAZOLE
  6. SILDENAFIL. [Concomitant]
     Active Substance: SILDENAFIL

REACTIONS (4)
  - Cardiac operation [Recovered/Resolved]
  - Catheterisation cardiac [Recovered/Resolved]
  - Product dose omission issue [Unknown]
  - Influenza [Unknown]

NARRATIVE: CASE EVENT DATE: 20200629
